FAERS Safety Report 16287116 (Version 1)
Quarter: 2019Q2

REPORT INFORMATION
  Report Type: Report from Study
  Country: US (occurrence: US)
  Receive Date: 20190508
  Receipt Date: 20190508
  Transmission Date: 20190711
  Serious: Yes (Hospitalization, Other)
  Sender: FDA-Public Use
  Company Number: US-BRISTOL-MYERS SQUIBB COMPANY-BMS-2019-036544

PATIENT
  Age: 77 Year
  Sex: Female

DRUGS (6)
  1. CRS-207 [Suspect]
     Active Substance: INVESTIGATIONAL PRODUCT
     Indication: PANCREATIC CARCINOMA METASTATIC
     Dosage: 1X 109 CFU
     Route: 065
     Dates: start: 20190320, end: 20190320
  2. ELIQUIS [Suspect]
     Active Substance: APIXABAN
     Indication: PRODUCT USED FOR UNKNOWN INDICATION
     Dosage: UNK
     Route: 065
  3. NIVOLUMAB [Suspect]
     Active Substance: NIVOLUMAB
     Indication: PANCREATIC CARCINOMA METASTATIC
     Dosage: 360 MILLIGRAM
     Route: 065
     Dates: start: 20190205, end: 20190319
  4. GVAX [Suspect]
     Active Substance: INVESTIGATIONAL PRODUCT
     Indication: PANCREATIC CARCINOMA METASTATIC
     Dosage: 5 X 108 CELLS
     Route: 065
     Dates: start: 20190206, end: 20190227
  5. IPILIMUMAB [Suspect]
     Active Substance: IPILIMUMAB
     Indication: PANCREATIC CARCINOMA METASTATIC
     Dosage: 1 MILLIGRAM/SQ. METER
     Route: 065
     Dates: start: 20190205, end: 20190319
  6. CYCLOPHOSPHAMIDE. [Suspect]
     Active Substance: CYCLOPHOSPHAMIDE
     Indication: PANCREATIC CARCINOMA METASTATIC
     Dosage: 200 MILLIGRAM/SQ. METER
     Route: 065
     Dates: start: 20190205, end: 20190226

REACTIONS (3)
  - Nephritis [Recovered/Resolved]
  - Haematuria [Recovered/Resolved]
  - Escherichia urinary tract infection [Unknown]

NARRATIVE: CASE EVENT DATE: 20190404
